FAERS Safety Report 8313386-2 (Version None)
Quarter: 2012Q2

REPORT INFORMATION
  Report Type: 
  Country: None (occurrence: None)
  Receive Date: 20120424
  Receipt Date: 20120409
  Transmission Date: 20120825
  Serious: Yes (Hospitalization, Other)
  Sender: FDA-Public Use
  Company Number: THQ2009A03070

PATIENT
  Age: 36 Year
  Sex: Female

DRUGS (14)
  1. ARIPIPRAZOLE [Concomitant]
  2. LANSOPRAZOLE [Suspect]
     Indication: PRODUCT USED FOR UNKNOWN INDICATION
     Dosage: 30 MG (30 MG,1 IN 1 D) PER ORAL
     Route: 048
  3. DIAZEPAM [Suspect]
     Indication: PRODUCT USED FOR UNKNOWN INDICATION
     Dosage: (AS REQUIRED)
  4. FUROSEMIDE [Concomitant]
  5. FOLIC ACID [Suspect]
     Indication: PRODUCT USED FOR UNKNOWN INDICATION
     Dosage: 5 MG (5 MG,1 IN 1 D) PER ORAL
     Route: 048
  6. RAMIPRIL [Concomitant]
  7. PERINDOPRIL ERBUMINE [Suspect]
     Indication: PRODUCT USED FOR UNKNOWN INDICATION
     Dosage: 2 MG ( 2 MG,1 IN 1 D) PER ORAL
     Route: 048
  8. CLOZARIL [Suspect]
     Indication: SCHIZOPHRENIA
     Dosage: 250 MG (250 MG,1 IN 1 D) PER ORAL ; 250 MG (250 MG,1 IN 1 D) PER ORAL
     Route: 048
     Dates: start: 20060605, end: 20060713
  9. CLOZARIL [Suspect]
     Indication: SCHIZOPHRENIA
     Dosage: 250 MG (250 MG,1 IN 1 D) PER ORAL ; 250 MG (250 MG,1 IN 1 D) PER ORAL
     Route: 048
     Dates: end: 20050519
  10. TRIMETHOPRIM [Suspect]
     Indication: URINARY TRACT INFECTION
  11. LACTULOSE [Suspect]
     Indication: PRODUCT USED FOR UNKNOWN INDICATION
     Dosage: (10 ML,AS REQUIRED)
  12. ZOPICLONE [Concomitant]
  13. FERROUS SULFATE TAB [Suspect]
     Indication: PRODUCT USED FOR UNKNOWN INDICATION
     Dosage: 400 MG (200 MG,2 IN 1 D) PER ORAL
     Route: 048
  14. BENDROFLUAZIDE (BENDROFLUAZIDE) [Concomitant]

REACTIONS (23)
  - HIATUS HERNIA [None]
  - PYREXIA [None]
  - WHITE BLOOD CELL COUNT INCREASED [None]
  - CONSTIPATION [None]
  - NEUTROPHILIA [None]
  - SINUS TACHYCARDIA [None]
  - MALAISE [None]
  - TREATMENT NONCOMPLIANCE [None]
  - SKIN DISORDER [None]
  - HAEMORRHAGE [None]
  - IRON DEFICIENCY ANAEMIA [None]
  - MONOCYTE COUNT INCREASED [None]
  - URINARY TRACT INFECTION [None]
  - DIABETES MELLITUS [None]
  - THROMBOCYTOSIS [None]
  - ABDOMINAL TENDERNESS [None]
  - BODY MASS INDEX DECREASED [None]
  - HYPERTENSION [None]
  - WHITE BLOOD CELL DISORDER [None]
  - CARDIAC MURMUR [None]
  - STAPHYLOCOCCAL INFECTION [None]
  - MEAN CELL VOLUME DECREASED [None]
  - LABORATORY TEST INTERFERENCE [None]
